FAERS Safety Report 10921010 (Version 2)
Quarter: 2015Q3

REPORT INFORMATION
  Report Type: Spontaneous
  Country: IL (occurrence: IL)
  Receive Date: 20150317
  Receipt Date: 20150901
  Transmission Date: 20151125
  Serious: Yes (Hospitalization, Other)
  Sender: FDA-Public Use
  Company Number: IL-ROCHE-1549835

PATIENT
  Age: 64 Year
  Sex: Male

DRUGS (2)
  1. XOLAIR [Suspect]
     Active Substance: OMALIZUMAB
     Indication: ASTHMA
     Route: 058
     Dates: start: 200911
  2. XOLAIR [Suspect]
     Active Substance: OMALIZUMAB
     Indication: RHINITIS ALLERGIC
     Route: 058
     Dates: start: 2009

REACTIONS (9)
  - Syncope [Unknown]
  - Weight increased [Unknown]
  - Colon neoplasm [Recovering/Resolving]
  - Body mass index increased [Unknown]
  - Chronic gastritis [Unknown]
  - Small intestine carcinoma [Not Recovered/Not Resolved]
  - Anaemia [Recovering/Resolving]
  - Nasal polyps [Recovering/Resolving]
  - Renal cyst [Unknown]

NARRATIVE: CASE EVENT DATE: 201405
